FAERS Safety Report 7116678-8 (Version None)
Quarter: 2010Q4

REPORT INFORMATION
  Report Type: 
  Country: None (occurrence: None)
  Receive Date: 20101122
  Receipt Date: 20101110
  Transmission Date: 20110411
  Serious: Yes (Life-Threatening, Hospitalization)
  Sender: FDA-Public Use
  Company Number: B0683736A

PATIENT
  Sex: Female
  Weight: 47 kg

DRUGS (11)
  1. FORTUM [Suspect]
     Indication: OSTEITIS
     Dosage: 2G THREE TIMES PER DAY
     Route: 042
     Dates: start: 20100920, end: 20101011
  2. CIFLOX [Suspect]
     Indication: OSTEITIS
     Route: 048
     Dates: start: 20101011, end: 20101012
  3. ANAESTHETIC AGENTS (UNKNOWN TYPE) [Suspect]
     Dates: start: 20100930, end: 20100930
  4. AMIKIN [Concomitant]
     Indication: OSTEITIS
     Dosage: 1000MG PER DAY
     Route: 042
     Dates: start: 20100920, end: 20101011
  5. TRIATEC [Concomitant]
     Dosage: 1.25MG PER DAY
  6. AMLOR [Concomitant]
     Dosage: 5MG PER DAY
  7. REVATIO [Concomitant]
     Dosage: 20MG THREE TIMES PER DAY
     Route: 048
  8. MOTILIUM [Concomitant]
     Dosage: 10MG PER DAY
  9. CELLCEPT [Concomitant]
     Dates: end: 20100701
  10. CORTANCYL [Concomitant]
     Dates: end: 20100701
  11. BOTOX [Concomitant]
     Dates: start: 20100930, end: 20100930

REACTIONS (13)
  - AGRANULOCYTOSIS [None]
  - CHEST DISCOMFORT [None]
  - CHEST PAIN [None]
  - DRUG RASH WITH EOSINOPHILIA AND SYSTEMIC SYMPTOMS [None]
  - HISTIOCYTOSIS HAEMATOPHAGIC [None]
  - MALAISE [None]
  - NAUSEA [None]
  - PARAESTHESIA [None]
  - PERICARDITIS [None]
  - RASH PRURITIC [None]
  - RESPIRATORY DISTRESS [None]
  - TACHYCARDIA [None]
  - VOMITING [None]
